FAERS Safety Report 13281923 (Version 1)
Quarter: 2017Q1

REPORT INFORMATION
  Report Type: Spontaneous
  Country: US (occurrence: US)
  Receive Date: 20170301
  Receipt Date: 20170301
  Transmission Date: 20170428
  Serious: No
  Sender: FDA-Public Use
  Company Number: US-FERRINGPH-2016FE01439

PATIENT
  Age: 49 Year
  Sex: Female

DRUGS (7)
  1. DDAVP [Suspect]
     Active Substance: DESMOPRESSIN ACETATE
     Dosage: 2 SPRAYS 3 TIMES DAILY
     Route: 045
     Dates: start: 20160323
  2. LIPITOR [Concomitant]
     Active Substance: ATORVASTATIN CALCIUM
  3. PROAIR HFA [Concomitant]
     Active Substance: ALBUTEROL SULFATE
     Indication: ASTHMA
     Dosage: UNK, AS NEEDED
  4. DDAVP [Suspect]
     Active Substance: DESMOPRESSIN ACETATE
     Indication: DIABETES INSIPIDUS
     Dosage: 2 SPRAYS 2 TIMES DAILY
     Route: 045
     Dates: start: 1998, end: 20160322
  5. FENOFIBRATE. [Concomitant]
     Active Substance: FENOFIBRATE
  6. FISH OIL [Concomitant]
     Active Substance: FISH OIL
  7. MULTIVITAMINS [Concomitant]
     Active Substance: VITAMINS

REACTIONS (2)
  - Pollakiuria [Not Recovered/Not Resolved]
  - Drug ineffective [Unknown]

NARRATIVE: CASE EVENT DATE: 20160201
